FAERS Safety Report 7946510-1 (Version None)
Quarter: 2011Q4

REPORT INFORMATION
  Report Type: 
  Country: None (occurrence: None)
  Receive Date: 20111129
  Receipt Date: 20111122
  Transmission Date: 20120403
  Serious: Yes (Life-Threatening, Disabling, Other)
  Sender: FDA-Public Use
  Company Number: US-CELGENEUS-163-21880-11052947

PATIENT
  Sex: Female

DRUGS (20)
  1. REVLIMID [Suspect]
     Dosage: 5MG ALTERNATING WITH 10MG
     Route: 048
     Dates: start: 20110603, end: 20110614
  2. VALSARTAN [Concomitant]
     Dosage: 40 MILLIGRAM
     Route: 048
  3. ONDANSETRON HYDROCHLORIDE [Concomitant]
     Indication: NAUSEA
     Dosage: 4 MILLIGRAM
     Route: 048
  4. PROCHLORPERAZINE MALEATE [Concomitant]
     Dosage: 5 MILLIGRAM
     Route: 048
  5. VORICONAZOLE [Concomitant]
     Dosage: 200 MILLIGRAM
     Route: 048
  6. CYANOCOBALAMIN [Concomitant]
     Dosage: 1000 MICROGRAM
     Route: 048
  7. METFORMIN HCL [Concomitant]
     Dosage: 2000 MILLIGRAM
     Route: 048
  8. CHOLECALCIFEROL [Concomitant]
     Dosage: 2000 UNITS
     Route: 048
  9. REVLIMID [Suspect]
     Dosage: 5 MILLIGRAM
     Route: 048
     Dates: start: 20110527
  10. DACOGEN [Suspect]
     Route: 065
  11. POTASSIUM CHLORIDE [Concomitant]
     Dosage: 20 MILLIEQUIVALENTS
     Route: 048
  12. REVLIMID [Suspect]
     Dosage: 10 MILLIGRAM
     Route: 048
     Dates: start: 20110511, end: 20110501
  13. GLYBURIDE [Concomitant]
     Dosage: 10 MILLIGRAM
     Route: 048
  14. REVLIMID [Suspect]
     Dosage: 2.5 MILLIGRAM
     Route: 048
     Dates: start: 20110616, end: 20110705
  15. LEVOTHYROXINE SODIUM [Concomitant]
     Dosage: 88 MICROGRAM
     Route: 048
  16. MAGNESIUM OXIDE [Concomitant]
     Dosage: 500 MILLIGRAM
     Route: 048
  17. INSULIN GLARGINE [Concomitant]
     Dosage: 35 UNITS
     Route: 058
  18. GINGER [Concomitant]
     Dosage: 550 MILLIGRAM
     Route: 048
  19. ACYCLOVIR [Concomitant]
     Dosage: 200 MILLIGRAM
     Route: 048
  20. REVLIMID [Suspect]
     Dosage: 5 MILLIGRAM
     Route: 048
     Dates: start: 20110520

REACTIONS (3)
  - PANCYTOPENIA [None]
  - RASH [None]
  - BLOOD BILIRUBIN INCREASED [None]
